FAERS Safety Report 5077797-3 (Version None)
Quarter: 2006Q3

REPORT INFORMATION
  Report Type: 
  Country: None (occurrence: None)
  Receive Date: 20060810
  Receipt Date: 20060721
  Transmission Date: 20061208
  Serious: Yes (Hospitalization, Other)
  Sender: FDA-Public Use
  Company Number: SG-MERCK-0607SGP00006

PATIENT
  Age: 70 Year
  Sex: Male

DRUGS (12)
  1. ZETIA [Suspect]
     Route: 048
     Dates: start: 20050101, end: 20050701
  2. SIMVASTATIN [Concomitant]
     Route: 048
  3. ASPIRIN [Concomitant]
     Route: 065
  4. ENALAPRIL MALEATE [Concomitant]
     Route: 065
  5. CARVEDILOL [Concomitant]
     Route: 065
  6. FUROSEMIDE [Concomitant]
     Route: 065
  7. WARFARIN [Concomitant]
     Route: 065
  8. POTASSIUM CHLORIDE [Concomitant]
     Route: 065
  9. TRIMETAZIDINE [Concomitant]
     Route: 065
  10. GABAPENTIN [Concomitant]
     Route: 065
  11. CEFTRIAXONE SODIUM [Concomitant]
     Route: 065
  12. INDOMETHACIN [Concomitant]
     Route: 065

REACTIONS (3)
  - CARDIAC FAILURE [None]
  - INFECTION [None]
  - RHABDOMYOLYSIS [None]
